FAERS Safety Report 17601997 (Version 2)
Quarter: 2020Q2

REPORT INFORMATION
  Report Type: Spontaneous
  Country: US (occurrence: US)
  Receive Date: 20200330
  Receipt Date: 20200406
  Transmission Date: 20200713
  Serious: Yes (Death, Hospitalization, Other)
  Sender: FDA-Public Use
  Company Number: US-NAPPMUNDI-USA-2020-0150840

PATIENT
  Age: 65 Year
  Sex: Male

DRUGS (5)
  1. OXYCONTIN [Suspect]
     Active Substance: OXYCODONE HYDROCHLORIDE
     Indication: SPINAL OPERATION
     Dosage: 20 MG, BID
     Route: 048
     Dates: start: 2002
  2. OXYCONTIN [Suspect]
     Active Substance: OXYCODONE HYDROCHLORIDE
     Dosage: 60 MG, UNK
     Route: 048
  3. NARCAN [Suspect]
     Active Substance: NALOXONE HYDROCHLORIDE
     Indication: PRODUCT USED FOR UNKNOWN INDICATION
     Route: 065
  4. OXYCONTIN [Suspect]
     Active Substance: OXYCODONE HYDROCHLORIDE
     Dosage: 60 MG, BID
     Route: 048
  5. OXYCONTIN [Suspect]
     Active Substance: OXYCODONE HYDROCHLORIDE
     Dosage: 80 MG, BID
     Route: 048

REACTIONS (10)
  - Renal failure [Fatal]
  - Diabetes mellitus [Unknown]
  - Drug withdrawal syndrome [Unknown]
  - Abnormal behaviour [Unknown]
  - Gait inability [Unknown]
  - Blood creatinine increased [Unknown]
  - Drug dependence [Unknown]
  - Cerebrovascular accident [Unknown]
  - Chronic obstructive pulmonary disease [Unknown]
  - Hospitalisation [Unknown]

NARRATIVE: CASE EVENT DATE: 2015
